FAERS Safety Report 8423209-9 (Version None)
Quarter: 2012Q2

REPORT INFORMATION
  Report Type: 
  Country: None (occurrence: None)
  Receive Date: 20120323
  Receipt Date: 20110323
  Transmission Date: 20120825
  Serious: Yes (Hospitalization, Other)
  Sender: FDA-Public Use
  Company Number: 163-21880-11022286

PATIENT
  Age: 83 Year
  Sex: Male

DRUGS (1)
  1. REVLIMID [Suspect]
     Indication: MULTIPLE MYELOMA
     Dosage: 10 MG, 1 IN 1 D, PO
     Route: 048
     Dates: start: 20110204

REACTIONS (8)
  - LOSS OF CONSCIOUSNESS [None]
  - HYPOTENSION [None]
  - DIZZINESS [None]
  - DYSPHONIA [None]
  - ASTHENIA [None]
  - MUSCLE SPASMS [None]
  - MYALGIA [None]
  - MAJOR DEPRESSION [None]
